FAERS Safety Report 10575241 (Version 3)
Quarter: 2015Q1

REPORT INFORMATION
  Report Type: Spontaneous
  Country: IT (occurrence: IT)
  Receive Date: 20141111
  Receipt Date: 20150325
  Transmission Date: 20150720
  Serious: Yes (Other)
  Sender: FDA-Public Use
  Company Number: IT-RANBAXY-2014RR-87231

PATIENT
  Age: 80 Year
  Sex: Female

DRUGS (3)
  1. DELORAZEPAM [Suspect]
     Active Substance: DELORAZEPAM
     Indication: DRUG ABUSE
     Dosage: 2 DF, UNK
     Route: 048
     Dates: start: 20140911, end: 20140911
  2. LORAZEPAM. [Suspect]
     Active Substance: LORAZEPAM
     Indication: DRUG ABUSE
     Dosage: 7.5 MG, UNK
     Route: 048
     Dates: start: 20140911, end: 20140911
  3. PAROXETINE [Suspect]
     Active Substance: PAROXETINE\PAROXETINE HYDROCHLORIDE
     Indication: DRUG ABUSE
     Dosage: 2 DF, UNK
     Route: 048
     Dates: start: 20140911, end: 20140911

REACTIONS (3)
  - Sopor [Recovering/Resolving]
  - Drug abuse [Recovering/Resolving]
  - Psychomotor retardation [Recovering/Resolving]

NARRATIVE: CASE EVENT DATE: 20140911
